FAERS Safety Report 16049001 (Version 2)
Quarter: 2019Q1

REPORT INFORMATION
  Report Type: Spontaneous
  Country: FR (occurrence: FR)
  Receive Date: 20190307
  Receipt Date: 20190319
  Transmission Date: 20190418
  Serious: Yes (Hospitalization)
  Sender: FDA-Public Use
  Company Number: FR-ROCHE-2275954

PATIENT
  Age: 65 Year
  Sex: Male
  Weight: 85 kg

DRUGS (9)
  1. EMEND [Suspect]
     Active Substance: APREPITANT
     Dosage: 80 MILLIGRAM
     Route: 048
  2. ONDANSETRON [Concomitant]
     Active Substance: ONDANSETRON
     Indication: PREMEDICATION
     Route: 042
     Dates: start: 20190205, end: 20190205
  3. IRINOTECAN HYDROCHLORIDE. [Suspect]
     Active Substance: IRINOTECAN HYDROCHLORIDE
     Indication: COLORECTAL CANCER
     Route: 065
     Dates: start: 20190205
  4. CALCIUM FOLINATE [Concomitant]
     Active Substance: LEUCOVORIN CALCIUM
     Indication: CHEMOTHERAPY
     Route: 065
     Dates: start: 20190205, end: 20190205
  5. EMEND [Suspect]
     Active Substance: APREPITANT
     Indication: PROPHYLAXIS OF NAUSEA AND VOMITING
     Dosage: 125 MILLIGRAM ON DAY 1
     Route: 048
     Dates: start: 20190205
  6. METHYLPREDNISOLONE. [Suspect]
     Active Substance: METHYLPREDNISOLONE
     Indication: PREMEDICATION
     Dosage: LAST DOSE DATE:05/FEB/2019
     Route: 042
     Dates: start: 20190205
  7. ATROPINE. [Concomitant]
     Active Substance: ATROPINE
     Indication: PREMEDICATION
     Route: 058
     Dates: start: 20190205, end: 20190205
  8. EMEND [Suspect]
     Active Substance: APREPITANT
     Dosage: 80 MILLIGRAM
     Route: 048
  9. AVASTIN [Suspect]
     Active Substance: BEVACIZUMAB
     Indication: COLORECTAL CANCER
     Route: 065
     Dates: start: 20190205

REACTIONS (6)
  - Vomiting [Unknown]
  - Pyrexia [Unknown]
  - Erythema [Recovered/Resolved]
  - Toxic skin eruption [Unknown]
  - Flushing [Unknown]
  - Nausea [Unknown]

NARRATIVE: CASE EVENT DATE: 20190205
